FAERS Safety Report 6551594-1 (Version None)
Quarter: 2010Q1

REPORT INFORMATION
  Report Type: 
  Country: None (occurrence: None)
  Receive Date: 20100120
  Receipt Date: 20091119
  Transmission Date: 20100710
  Serious: Yes (Hospitalization)
  Sender: FDA-Public Use
  Company Number: 2009BM000321

PATIENT
  Age: 7 Year
  Sex: Male

DRUGS (3)
  1. NAGLAZYME [Suspect]
     Indication: MUCOPOLYSACCHARIDOSIS VI
     Dosage: 15 MG;QW; IVDRP
     Route: 041
     Dates: start: 20080812
  2. ACETAMINOPHEN [Concomitant]
  3. HYDROXYZINE [Concomitant]

REACTIONS (4)
  - ADENOTONSILLECTOMY [None]
  - DISEASE PROGRESSION [None]
  - INFECTION [None]
  - MUCOPOLYSACCHARIDOSIS VI [None]
